FAERS Safety Report 22530417 (Version 1)
Quarter: 2023Q2

REPORT INFORMATION
  Report Type: Spontaneous
  Country: US (occurrence: US)
  Receive Date: 20230607
  Receipt Date: 20230607
  Transmission Date: 20230722
  Serious: Yes (Hospitalization, Other)
  Sender: FDA-Public Use
  Company Number: US-AZURITY PHARMACEUTICALS, INC.-US-2023ARB004238

PATIENT
  Age: 60 Year
  Sex: Male

DRUGS (1)
  1. METHOTREXATE [Suspect]
     Active Substance: METHOTREXATE
     Indication: Product used for unknown indication
     Dosage: 15 MG, DAILY FOR FOUR DAYS

REACTIONS (5)
  - Swollen tongue [Recovering/Resolving]
  - Skin lesion [Recovering/Resolving]
  - Toxicity to various agents [Recovering/Resolving]
  - Stomatitis [Recovering/Resolving]
  - Inappropriate schedule of product administration [Unknown]
